FAERS Safety Report 14822175 (Version 1)
Quarter: 2020Q3

REPORT INFORMATION
  Report Type: Report from Study
  Country: BR (occurrence: BR)
  Receive Date: 20180427
  Receipt Date: 20180427
  Transmission Date: 20201104
  Serious: Yes (Hospitalization)
  Sender: FDA-Public Use
  Company Number: BR-ASTRAZENECA-2017SE29873

PATIENT
  Age: 24079 Day
  Sex: Female

DRUGS (25)
  1. DRAMIN B6 [Concomitant]
     Indication: NON-CARDIAC CHEST PAIN
     Dosage: 60.0MG AS REQUIRED
     Route: 048
  2. BISACODYL. [Concomitant]
     Active Substance: BISACODYL
     Indication: CONSTIPATION
     Dosage: 5.0MG AS REQUIRED
     Route: 048
     Dates: start: 20161111
  3. TREMELIMUMAB. [Suspect]
     Active Substance: TREMELIMUMAB
     Indication: NON-SMALL CELL LUNG CANCER
     Route: 042
     Dates: start: 20170324, end: 20170324
  4. AMLODIPINE BESYLATE. [Concomitant]
     Active Substance: AMLODIPINE BESYLATE
     Indication: HYPERTENSION
     Route: 048
     Dates: start: 20160101
  5. ONDANSETRON [Concomitant]
     Active Substance: ONDANSETRON
     Indication: NAUSEA
     Dosage: 8.0MG AS REQUIRED
     Route: 048
     Dates: start: 20161104
  6. AMOXICILLIN AND CLAVULANATE [Concomitant]
     Active Substance: AMOXICILLIN\CLAVULANIC ACID
     Indication: NON-CARDIAC CHEST PAIN
     Dosage: 1 CAP BID
     Route: 048
     Dates: start: 20170310, end: 20170317
  7. MEDI4736 [Suspect]
     Active Substance: DURVALUMAB
     Indication: NON-SMALL CELL LUNG CANCER
     Route: 042
     Dates: start: 20161209, end: 20161209
  8. OMEPRAZOLE. [Concomitant]
     Active Substance: OMEPRAZOLE
     Indication: PROPHYLAXIS AGAINST GASTROINTESTINAL ULCER
     Route: 048
     Dates: start: 20160820
  9. IPRATROPIUM [Concomitant]
     Active Substance: IPRATROPIUM
     Indication: COUGH
     Dosage: 20.0GTT AS REQUIRED
     Route: 055
     Dates: start: 20161104
  10. CODEINE [Concomitant]
     Active Substance: CODEINE
     Indication: CHEST PAIN
     Dosage: 30.0MG AS REQUIRED
     Route: 048
     Dates: start: 20161104
  11. MEDI4736 [Suspect]
     Active Substance: DURVALUMAB
     Indication: NON-SMALL CELL LUNG CANCER
     Route: 042
     Dates: start: 20170103, end: 20170103
  12. TREMELIMUMAB. [Suspect]
     Active Substance: TREMELIMUMAB
     Indication: NON-SMALL CELL LUNG CANCER
     Route: 042
     Dates: start: 20161209, end: 20161209
  13. TREMELIMUMAB. [Suspect]
     Active Substance: TREMELIMUMAB
     Indication: NON-SMALL CELL LUNG CANCER
     Route: 042
     Dates: start: 20170103, end: 20170103
  14. LOSARTAN. [Concomitant]
     Active Substance: LOSARTAN
     Indication: HYPERTENSION
     Route: 048
     Dates: start: 20160101
  15. OXYCODONE [Concomitant]
     Active Substance: OXYCODONE
     Indication: NON-CARDIAC CHEST PAIN
     Route: 048
     Dates: start: 20170310
  16. DIPIRON [Concomitant]
     Indication: CHEST PAIN
     Dosage: 1000.0MG AS REQUIRED
     Route: 048
     Dates: start: 20161104
  17. DIMENHYDRINATE. [Concomitant]
     Active Substance: DIMENHYDRINATE
     Indication: NAUSEA
     Dosage: 60.0MG AS REQUIRED
     Route: 048
     Dates: start: 20161214
  18. COLD CREAM [Concomitant]
     Indication: DERMATITIS ACNEIFORM
     Route: 003
     Dates: start: 20170203
  19. MEDI4736 [Suspect]
     Active Substance: DURVALUMAB
     Indication: NON-SMALL CELL LUNG CANCER
     Route: 042
     Dates: start: 20170210, end: 20170210
  20. MEDI4736 [Suspect]
     Active Substance: DURVALUMAB
     Indication: NON-SMALL CELL LUNG CANCER
     Route: 042
     Dates: start: 20170324, end: 20170324
  21. MEDI4736 [Suspect]
     Active Substance: DURVALUMAB
     Indication: NON-SMALL CELL LUNG CANCER
     Route: 042
     Dates: start: 20170503, end: 20170503
  22. TREMELIMUMAB. [Suspect]
     Active Substance: TREMELIMUMAB
     Indication: NON-SMALL CELL LUNG CANCER
     Route: 042
     Dates: start: 20170210, end: 20170210
  23. CODEINE + BELLADONNA [Concomitant]
     Indication: COUGH
     Route: 048
     Dates: start: 20161104
  24. BROMOPRIDE [Concomitant]
     Active Substance: BROMOPRIDE
     Indication: NAUSEA
     Route: 048
     Dates: start: 20161104
  25. FLUNARIZINE [Concomitant]
     Active Substance: FLUNARIZINE
     Indication: NON-CARDIAC CHEST PAIN
     Route: 048
     Dates: start: 20170318

REACTIONS (1)
  - Labyrinthitis [Not Recovered/Not Resolved]

NARRATIVE: CASE EVENT DATE: 20170316
